FAERS Safety Report 21200608 (Version 1)
Quarter: 2022Q3

REPORT INFORMATION
  Report Type: Spontaneous
  Country: US (occurrence: None)
  Receive Date: 20220810
  Receipt Date: 20220810
  Transmission Date: 20221026
  Serious: No
  Sender: FDA-Public Use
  Company Number: None

PATIENT
  Sex: Male

DRUGS (2)
  1. SILDENAFIL CITRATE [Suspect]
     Active Substance: SILDENAFIL CITRATE
     Indication: Pulmonary arterial hypertension
     Dosage: 20MG THREE TIMES DAILY BY MOUTH?
     Route: 048
     Dates: start: 20210414
  2. ELIQUIS [Suspect]
     Active Substance: APIXABAN

REACTIONS (1)
  - Adverse drug reaction [None]
